FAERS Safety Report 5321201-4 (Version None)
Quarter: 2007Q2

REPORT INFORMATION
  Report Type: 
  Country: None (occurrence: None)
  Receive Date: 20070215
  Receipt Date: 20061211
  Transmission Date: 20071010
  Serious: Yes (Hospitalization)
  Sender: FDA-Public Use
  Company Number: 2006BH014946

PATIENT
  Sex: Male

DRUGS (1)
  1. EXTRANEAL [Suspect]
     Indication: PERITONEAL DIALYSIS
     Dates: start: 20060127, end: 20060201

REACTIONS (3)
  - DERMATITIS EXFOLIATIVE [None]
  - PERITONITIS [None]
  - RASH [None]
